FAERS Safety Report 9696094 (Version 1)
Quarter: 2013Q4

REPORT INFORMATION
  Report Type: Spontaneous
  Country: CN (occurrence: CN)
  Receive Date: 20131119
  Receipt Date: 20131119
  Transmission Date: 20140711
  Serious: Yes (Other)
  Sender: FDA-Public Use
  Company Number: CN-GLAXOSMITHKLINE-B0944375A

PATIENT
  Age: 60 Year
  Sex: Male
  Weight: 45 kg

DRUGS (1)
  1. SEROXAT [Suspect]
     Indication: ANXIETY
     Dosage: 10MG PER DAY
     Route: 048
     Dates: start: 20120829, end: 20120829

REACTIONS (6)
  - Urinary retention [Recovering/Resolving]
  - Palpitations [Recovering/Resolving]
  - Chest discomfort [Recovering/Resolving]
  - Nausea [Recovering/Resolving]
  - Panic reaction [Recovering/Resolving]
  - Dyspnoea [Recovering/Resolving]
